FAERS Safety Report 17895172 (Version 5)
Quarter: 2022Q4

REPORT INFORMATION
  Report Type: Report from Study
  Country: BR (occurrence: BR)
  Receive Date: 20200615
  Receipt Date: 20221206
  Transmission Date: 20230112
  Serious: Yes (Hospitalization, Other)
  Sender: FDA-Public Use
  Company Number: BR-UCBSA-2020023001

PATIENT
  Age: 1 Year
  Sex: Male
  Weight: 21.2 kg

DRUGS (25)
  1. LACOSAMIDE [Suspect]
     Active Substance: LACOSAMIDE
     Indication: Epilepsy
     Dosage: 9.5 MILLILITER, 2X/DAY (BID)
     Dates: start: 20170602
  2. LACOSAMIDE [Suspect]
     Active Substance: LACOSAMIDE
     Dosage: 12.5 MILLILITER, 2X/DAY (BID)
  3. KEPPRA [Suspect]
     Active Substance: LEVETIRACETAM
     Dosage: 125 MILLIGRAM, 2X/DAY (BID)
     Dates: start: 201701
  4. LAMOTRIGINE [Concomitant]
     Active Substance: LAMOTRIGINE
     Indication: Epilepsy
     Dosage: 50 MILLIGRAM, ONCE DAILY (QD)
     Dates: start: 201701
  5. VALPROATE SODIUM [Concomitant]
     Active Substance: VALPROATE SODIUM
     Indication: Epilepsy
     Dosage: 250 MILLIGRAM, 2X/DAY (BID)
     Dates: start: 201701
  6. PHENOBARBITAL [Concomitant]
     Active Substance: PHENOBARBITAL
     Indication: Epilepsy
     Dosage: 40 MILLIGRAM, ONCE DAILY (QD)
     Dates: start: 201701
  7. ACETAMINOPHEN [Concomitant]
     Active Substance: ACETAMINOPHEN
     Indication: Pyrexia
     Dosage: UNK
     Dates: start: 20200528, end: 20200528
  8. CLONIDINE [Concomitant]
     Active Substance: CLONIDINE
     Indication: Surgery
     Dosage: UNK
     Dates: start: 20200528, end: 20200528
  9. DEXAMETHASONE ACETATE [Concomitant]
     Active Substance: DEXAMETHASONE ACETATE
     Indication: Surgery
     Dosage: UNK
     Dates: start: 20200528, end: 20200528
  10. MORPHINE SULFATE [Concomitant]
     Active Substance: MORPHINE SULFATE
     Indication: Surgery
     Dosage: UNK
     Dates: start: 20200528, end: 20200528
  11. ROCURONIUM BROMIDE [Concomitant]
     Active Substance: ROCURONIUM BROMIDE
     Indication: Surgery
     Dosage: UNK
     Dates: start: 20200528, end: 20200528
  12. OMNIPAQUE [Concomitant]
     Active Substance: IOHEXOL
     Indication: Surgery
     Dosage: UNK
     Dates: start: 20200528, end: 20200528
  13. ONDANSETRON [Concomitant]
     Active Substance: ONDANSETRON
     Indication: Surgery
     Dosage: UNK
     Dates: start: 20200528, end: 20200528
  14. PROPOVAN [Concomitant]
     Indication: Surgery
     Dosage: UNK
     Dates: start: 20200528, end: 20200528
  15. SEVOFLURANE [Concomitant]
     Active Substance: SEVOFLURANE
     Indication: Surgery
     Dosage: UNK
     Dates: start: 20200528, end: 20200528
  16. SODIUM CHLORIDE [Concomitant]
     Active Substance: SODIUM CHLORIDE
     Indication: Surgery
     Dosage: UNK
     Dates: start: 20200528, end: 20200528
  17. RINGER LACTATE [CALCIUM CHLORIDE DIHYDRATE;POTASSIUM CHLORIDE;SODIUM C [Concomitant]
     Dosage: UNK
     Dates: start: 20200528, end: 20200528
  18. UNIFENTAL [Concomitant]
     Indication: Surgery
     Dosage: UNK
     Dates: start: 20200528, end: 20200528
  19. VISIDIC [Concomitant]
     Indication: Surgery
  20. DIPYRONE [Concomitant]
     Active Substance: DIPYRONE
     Indication: Analgesic therapy
  21. IBUPROFEN [Concomitant]
     Active Substance: IBUPROFEN
     Indication: Analgesic therapy
  22. CEFAZOLIN [Concomitant]
     Active Substance: CEFAZOLIN
     Indication: Antibiotic therapy
  23. KETOPROFEN [Concomitant]
     Active Substance: KETOPROFEN
     Indication: Analgesic intervention supportive therapy
  24. TRAMADOL [Concomitant]
     Active Substance: TRAMADOL
     Indication: Analgesic therapy
  25. KETOROLAC [Concomitant]
     Active Substance: KETOROLAC TROMETHAMINE
     Indication: Analgesic therapy

REACTIONS (11)
  - Joint dislocation [Recovered/Resolved]
  - Femur fracture [Recovered/Resolved]
  - Osteomyelitis [Recovered/Resolved]
  - Septic shock [Recovered/Resolved]
  - Hepatic function abnormal [Recovered/Resolved]
  - Fracture treatment [Recovered/Resolved]
  - Debridement [Recovered/Resolved]
  - Anaemia [Recovered/Resolved]
  - Hyperthermia [Recovered/Resolved]
  - Off label use [Unknown]
  - Underdose [Unknown]

NARRATIVE: CASE EVENT DATE: 20170101
